FAERS Safety Report 7860778-1 (Version None)
Quarter: 2011Q4

REPORT INFORMATION
  Report Type: 
  Country: None (occurrence: None)
  Receive Date: 20111027
  Receipt Date: 20111018
  Transmission Date: 20120403
  Serious: Yes (Death)
  Sender: FDA-Public Use
  Company Number: JP-GENZYME-THYM-1002063

PATIENT
  Sex: Male
  Weight: 58 kg

DRUGS (21)
  1. THYMOGLOBULIN [Suspect]
     Indication: APLASTIC ANAEMIA
     Dosage: 150 MG, QD
     Route: 042
     Dates: start: 20101019, end: 20101022
  2. PANTETHINE [Concomitant]
     Indication: CONSTIPATION
     Dosage: UNK
     Dates: start: 20101001, end: 20101030
  3. RED BLOOD CELLS, CONCENTRATED [Concomitant]
     Indication: APLASTIC ANAEMIA
     Dosage: UNK
     Dates: start: 20100929, end: 20101101
  4. CARVEDILOL [Concomitant]
     Indication: HYPERTENSION
     Dosage: UNK
     Dates: start: 20101001, end: 20101030
  5. AMLODIPINE BESYLATE [Concomitant]
     Indication: HYPERTENSION
     Dosage: UNK
     Dates: start: 20101001, end: 20101030
  6. SPIRONOLACTONE [Concomitant]
     Indication: HYPERTENSION
     Dosage: UNK
     Dates: start: 20101001, end: 20101030
  7. LANSOPRAZOLE [Concomitant]
     Indication: GASTRITIS
     Dosage: UNK
     Dates: start: 20101001, end: 20101030
  8. METHYLPREDNISOLONE SODIUM SUCCINATE [Concomitant]
     Indication: PREMEDICATION
     Dosage: UNK
     Dates: start: 20101019, end: 20101025
  9. BACTRIM [Concomitant]
     Indication: INFECTION PROPHYLAXIS
     Dosage: UNK
     Dates: start: 20101001, end: 20101030
  10. FLUNITRAZEPAM [Concomitant]
     Indication: INSOMNIA
     Dosage: UNK
     Dates: start: 20101001, end: 20101030
  11. MECOBALAMIN [Concomitant]
     Indication: NEUROSIS
     Dosage: UNK
     Dates: start: 20101001, end: 20101030
  12. CEFEPIME HYDROCHLORIDE [Concomitant]
     Indication: PNEUMONIA
     Dosage: UNK
     Dates: start: 20101021, end: 20101028
  13. TRANEXAMIC ACID [Concomitant]
     Indication: HAEMORRHAGE
     Dosage: UNK
     Dates: start: 20101001, end: 20101030
  14. MINOPHAGEN C [Concomitant]
     Indication: LIVER DISORDER
     Dosage: UNK
     Dates: start: 20101026, end: 20101104
  15. ISOSORBIDE DINITRATE [Concomitant]
     Indication: ANGINA PECTORIS
     Dosage: UNK
     Dates: start: 20101001, end: 20101030
  16. IMMUNE GLOBULIN INTRAVENOUS (HUMAN) [Concomitant]
     Indication: SEPSIS
     Dosage: UNK
     Dates: start: 20101026, end: 20101028
  17. PLATELETS, CONCENTRATED [Concomitant]
     Indication: APLASTIC ANAEMIA
     Dosage: UNK
     Dates: start: 20100601, end: 20101115
  18. IRBESARTAN [Concomitant]
     Indication: HYPERTENSION
     Dosage: UNK
     Dates: start: 20101001, end: 20101030
  19. PREDNISOLONE [Concomitant]
     Indication: APLASTIC ANAEMIA
     Dosage: UNK
     Dates: start: 20101001, end: 20101030
  20. HYDROCORTISONE SODIUM SUCCINATE [Concomitant]
     Indication: PREMEDICATION
     Dosage: UNK
     Dates: start: 20101018, end: 20101104
  21. MORPHINE SULFATE [Concomitant]
     Indication: OROPHARYNGEAL PAIN
     Dosage: UNK
     Dates: start: 20101024, end: 20101027

REACTIONS (3)
  - PNEUMONIA ESCHERICHIA [None]
  - NEUTROPENIA [None]
  - PULMONARY OEDEMA [None]
